FAERS Safety Report 15326909 (Version 1)
Quarter: 2018Q3

REPORT INFORMATION
  Report Type: Spontaneous
  Country: US (occurrence: US)
  Receive Date: 20180823
  Receipt Date: 20180823
  Transmission Date: 20181010
  Serious: Yes (Other)
  Sender: FDA-Public Use
  Company Number: None

PATIENT
  Age: 67 Year
  Sex: Male
  Weight: 57.15 kg

DRUGS (10)
  1. ZEPATIER [Suspect]
     Active Substance: ELBASVIR\GRAZOPREVIR
  2. ELBASVIR 50MG/GRAZOPREVIR 100MG TAB [Concomitant]
  3. THIAMINE HCL 100MG TAB [Concomitant]
  4. ASPIRIN 325MG EC TAB [Concomitant]
  5. QUETIAPINE FUMARATE 25MG TAB [Concomitant]
  6. CHOLECALCIFEROL (VIT D3) 1,000UNIT TAB [Concomitant]
  7. LEVETIRACETAM 500MG TAB [Concomitant]
  8. OMEPRAZOLE 20MG EC CAP [Concomitant]
  9. MULTIVITAMIN/MINERALS CAP/TAB [Concomitant]
  10. SERTRALINE HCL 50MG TAB [Concomitant]

REACTIONS (2)
  - Hepatocellular carcinoma [None]
  - Tumour invasion [None]

NARRATIVE: CASE EVENT DATE: 20161109
